FAERS Safety Report 4639620-8 (Version None)
Quarter: 2005Q2

REPORT INFORMATION
  Report Type: 
  Country: None (occurrence: None)
  Receive Date: 20050415
  Receipt Date: 20050408
  Transmission Date: 20051028
  Serious: Yes (Life-Threatening, Hospitalization)
  Sender: FDA-Public Use
  Company Number: GXKR2005US00883

PATIENT
  Age: 53 Year
  Sex: Female

DRUGS (2)
  1. NAPROXEN [Suspect]
     Indication: HEADACHE
     Dosage: QD,
  2. ACIPHEX [Concomitant]

REACTIONS (7)
  - CUTANEOUS LUPUS ERYTHEMATOSUS [None]
  - DEEP VEIN THROMBOSIS [None]
  - DRUG HYPERSENSITIVITY [None]
  - EPIDERMOLYSIS [None]
  - FATIGUE [None]
  - HEPATIC ENZYME INCREASED [None]
  - TOXIC EPIDERMAL NECROLYSIS [None]
